FAERS Safety Report 16191448 (Version 2)
Quarter: 2019Q2

REPORT INFORMATION
  Report Type: Spontaneous
  Country: GR (occurrence: GR)
  Receive Date: 20190412
  Receipt Date: 20190615
  Transmission Date: 20190711
  Serious: Yes (Other)
  Sender: FDA-Public Use
  Company Number: GR-009507513-1904GRC003418

PATIENT
  Age: 66 Year
  Sex: Male

DRUGS (2)
  1. JANUMET [Suspect]
     Active Substance: METFORMIN HYDROCHLORIDE\SITAGLIPTIN PHOSPHATE
     Dosage: ONE TABLET (50/1000 MG) PER DAY (EVERY MORNING)
     Route: 048
     Dates: start: 1999
  2. JANUMET [Suspect]
     Active Substance: METFORMIN HYDROCHLORIDE\SITAGLIPTIN PHOSPHATE
     Dosage: 2 TABLETS PER DAY, 1 TABLET AT MORNING AND 1 TABLET AT NIGHT
     Route: 048
     Dates: start: 2018

REACTIONS (4)
  - Product dose omission [Unknown]
  - Blood glucose fluctuation [Unknown]
  - Parkinson^s disease [Unknown]
  - Blood glucose abnormal [Unknown]

NARRATIVE: CASE EVENT DATE: 201811
